FAERS Safety Report 8406723-1 (Version None)
Quarter: 2012Q2

REPORT INFORMATION
  Report Type: 
  Country: None (occurrence: None)
  Receive Date: 20120604
  Receipt Date: 20120531
  Transmission Date: 20120825
  Serious: Yes (Death)
  Sender: FDA-Public Use
  Company Number: PHHY2012DE046878

PATIENT
  Age: 42 Year
  Sex: Female

DRUGS (1)
  1. CLOZAPINE [Suspect]
     Indication: SCHIZOPHRENIA
     Dosage: 500 MG, QD
     Route: 048

REACTIONS (3)
  - BRONCHITIS [None]
  - CARDIOMYOPATHY [None]
  - RIGHT VENTRICULAR FAILURE [None]
